FAERS Safety Report 7021790-8 (Version None)
Quarter: 2010Q3

REPORT INFORMATION
  Report Type: 
  Country: None (occurrence: None)
  Receive Date: 20100930
  Receipt Date: 20100921
  Transmission Date: 20110219
  Serious: No
  Sender: FDA-Public Use
  Company Number: US-BIOGENIDEC-2010BI033202

PATIENT
  Sex: Female

DRUGS (2)
  1. TYSABRI [Suspect]
     Indication: MULTIPLE SCLEROSIS
     Route: 042
     Dates: start: 20070514, end: 20070731
  2. TYSABRI [Suspect]
     Route: 042
     Dates: start: 20090115

REACTIONS (3)
  - BONE DENSITY DECREASED [None]
  - PAIN [None]
  - PSORIASIS [None]
